FAERS Safety Report 4877931-1 (Version None)
Quarter: 2006Q1

REPORT INFORMATION
  Report Type: 
  Country: None (occurrence: None)
  Receive Date: 20060110
  Receipt Date: 20060103
  Transmission Date: 20060701
  Serious: Yes (Other)
  Sender: FDA-Public Use
  Company Number: 12800

PATIENT
  Sex: Female

DRUGS (17)
  1. BLEOMYCIN [Suspect]
     Indication: GERM CELL CANCER
     Dosage: 30000 UNITS PER_CYCLE IV
     Route: 042
  2. ETOPOSIDE [Suspect]
     Indication: GERM CELL CANCER
     Dosage: 220 MG PER_CYCLE IV
     Route: 042
  3. CISPLATIN [Suspect]
     Dosage: 94 MG PER_CYCLE IV
     Route: 042
  4. WARFARIN [Concomitant]
  5. THYROXINE [Concomitant]
  6. HYDROCORTISONE [Concomitant]
  7. RANITIDINE [Concomitant]
  8. PREGABALIN [Concomitant]
  9. DOMPERIDONE [Concomitant]
  10. DESMOPRESSIN [Concomitant]
  11. MOVICOL [Concomitant]
  12. APREPITANT [Concomitant]
  13. LORAZEPAM [Concomitant]
  14. METOCLOPRAMIDE [Concomitant]
  15. ORAMORPH SR [Concomitant]
  16. CO-CODAMOL [Concomitant]
  17. GRANISETRON [Concomitant]

REACTIONS (7)
  - BRAIN NEOPLASM [None]
  - CATHETER SITE PAIN [None]
  - HEADACHE [None]
  - NEUTROPENIC SEPSIS [None]
  - PNEUMONIA [None]
  - SOMNOLENCE [None]
  - TERATOMA [None]
